FAERS Safety Report 6068715-X (Version None)
Quarter: 2009Q1

REPORT INFORMATION
  Report Type: 
  Country: None (occurrence: None)
  Receive Date: 20090206
  Receipt Date: 20090204
  Transmission Date: 20090719
  Serious: Yes (Other)
  Sender: FDA-Public Use
  Company Number: B0557397A

PATIENT
  Age: 36 Year
  Sex: Female

DRUGS (1)
  1. RELENZA [Suspect]
     Dosage: 10MG PER DAY
     Route: 055
     Dates: start: 20090129, end: 20090129

REACTIONS (2)
  - ASTHMA [None]
  - EPISTAXIS [None]
